FAERS Safety Report 18807906 (Version 1)
Quarter: 2021Q1

REPORT INFORMATION
  Report Type: Report from Study
  Country: US (occurrence: US)
  Receive Date: 20210129
  Receipt Date: 20210129
  Transmission Date: 20210419
  Serious: Yes (Life-Threatening, Hospitalization)
  Sender: FDA-Public Use
  Company Number: US-RECRO GAINESVILLE LLC-REPH-2021-000002

PATIENT
  Age: 27 Year
  Sex: Female

DRUGS (1)
  1. VERAPAMIL HYDROCHLORIDE SUSTAINED RELEASE [Suspect]
     Active Substance: VERAPAMIL HYDROCHLORIDE
     Dosage: 18000 MILLIGRAM, ONE TIME DOSE
     Route: 048

REACTIONS (6)
  - Hypotension [Recovered/Resolved]
  - Intentional overdose [Recovered/Resolved]
  - Acute respiratory distress syndrome [Recovered/Resolved]
  - Acute respiratory failure [Recovered/Resolved]
  - Pulseless electrical activity [Recovered/Resolved]
  - Suicide attempt [Recovered/Resolved]
